FAERS Safety Report 21259319 (Version 1)
Quarter: 2022Q3

REPORT INFORMATION
  Report Type: Spontaneous
  Country: FR (occurrence: FR)
  Receive Date: 20220826
  Receipt Date: 20220826
  Transmission Date: 20221027
  Serious: Yes (Hospitalization)
  Sender: FDA-Public Use
  Company Number: None

PATIENT
  Age: 59 Year
  Sex: Male
  Weight: 92 kg

DRUGS (6)
  1. APREPITANT [Suspect]
     Active Substance: APREPITANT
     Indication: Chemotherapy side effect prophylaxis
     Dosage: 80 MILLIGRAM, 1 CYCLICAL
     Route: 048
     Dates: start: 20220715, end: 20220715
  2. DESLORATADINE [Suspect]
     Active Substance: DESLORATADINE
     Indication: Pruritus
     Dosage: UNK
     Route: 048
     Dates: end: 20220723
  3. YONDELIS [Suspect]
     Active Substance: TRABECTEDIN
     Indication: Myxoid liposarcoma
     Dosage: 3 MILLIGRAM, 1 CYCLICAL
     Route: 042
     Dates: start: 20220715, end: 20220715
  4. PREDNISOLONE SODIUM METAZOATE [Suspect]
     Active Substance: PREDNISOLONE SODIUM METAZOATE
     Indication: Chemotherapy side effect prophylaxis
     Dosage: 90 MILLIGRAM, 1 CYCLICAL
     Route: 048
     Dates: start: 20220715, end: 20220715
  5. PALONOSETRON HYDROCHLORIDE [Suspect]
     Active Substance: PALONOSETRON HYDROCHLORIDE
     Indication: Chemotherapy side effect prophylaxis
     Dosage: 250 MILLIGRAM, 1 CYCLICAL
     Route: 042
     Dates: start: 20220715, end: 20220715
  6. ELIQUIS [Suspect]
     Active Substance: APIXABAN
     Indication: Pulmonary embolism
     Dosage: 2.5 MILLIGRAM, Q12H
     Route: 048
     Dates: start: 202109, end: 20220723

REACTIONS (1)
  - Acute kidney injury [Recovering/Resolving]

NARRATIVE: CASE EVENT DATE: 20220720
